FAERS Safety Report 9021981 (Version 4)
Quarter: 2013Q1

REPORT INFORMATION
  Report Type: Report from Study
  Country: DE (occurrence: DE)
  Receive Date: 20130118
  Receipt Date: 20130319
  Transmission Date: 20140127
  Serious: Yes (Other)
  Sender: FDA-Public Use
  Company Number: PHHY2013DE003959

PATIENT
  Sex: Male

DRUGS (14)
  1. AMN107 [Suspect]
     Indication: CHRONIC MYELOID LEUKAEMIA
     Dosage: 400 MG, DAILY
     Route: 048
     Dates: start: 20110825, end: 20111222
  2. PANTOZOL [Concomitant]
  3. ACETYLSALICYLIC ACID [Concomitant]
     Dates: end: 20110831
  4. KEPPRA [Concomitant]
     Dates: start: 20101101
  5. BRONCHORETARD [Concomitant]
  6. PULMICORT [Concomitant]
  7. SULTANOL [Concomitant]
  8. ATROVENT [Concomitant]
  9. FOLIC ACID [Concomitant]
  10. FUROSEMIDE [Concomitant]
  11. SPIROBETA [Concomitant]
  12. LEFAX [Concomitant]
  13. PROFACT [Concomitant]
  14. ONBREZ BREEZHALER [Concomitant]
     Dates: start: 20110308

REACTIONS (9)
  - Blood pressure systolic increased [Recovered/Resolved]
  - Leukopenia [Recovered/Resolved]
  - Thrombocytopenia [Recovered/Resolved]
  - Dyspnoea [Not Recovered/Not Resolved]
  - Anaemia [Recovered/Resolved]
  - Vertigo [Recovered/Resolved]
  - Oedema peripheral [Recovered/Resolved]
  - Dizziness [Recovered/Resolved]
  - Drug ineffective [Unknown]
